FAERS Safety Report 5331456-8 (Version None)
Quarter: 2007Q2

REPORT INFORMATION
  Report Type: 
  Country: None (occurrence: None)
  Receive Date: 20070306
  Receipt Date: 20051130
  Transmission Date: 20071010
  Serious: Yes (Hospitalization)
  Sender: FDA-Public Use
  Company Number: A03200504117

PATIENT
  Age: 75 Year
  Sex: Female
  Weight: 60.32 kg

DRUGS (9)
  1. PLAVIX [Suspect]
     Indication: PERIPHERAL ARTERIAL OCCLUSIVE DISEASE
     Dosage: 75 MG QD - ORAL
     Route: 048
     Dates: start: 20040101, end: 20050101
  2. PLAVIX [Suspect]
     Indication: VASCULAR BYPASS GRAFT
     Dosage: 75 MG QD - ORAL
     Route: 048
     Dates: start: 20040101, end: 20050101
  3. PLAVIX [Suspect]
     Indication: PERIPHERAL ARTERIAL OCCLUSIVE DISEASE
     Dosage: 75 MG EVERY OTHER DAY - ORAL
     Route: 048
  4. PLAVIX [Suspect]
     Indication: VASCULAR BYPASS GRAFT
     Dosage: 75 MG EVERY OTHER DAY - ORAL
     Route: 048
  5. ATORVASTATIN [Concomitant]
  6. METOPROLOL TARTRATE [Concomitant]
  7. RAMIPRIL [Concomitant]
  8. CALCIUM CARBONATE [Concomitant]
  9. ALENDRONATE SODIUM [Concomitant]

REACTIONS (2)
  - CONTUSION [None]
  - DYSPNOEA [None]
